FAERS Safety Report 12832934 (Version 1)
Quarter: 2016Q4

REPORT INFORMATION
  Report Type: Spontaneous
  Country: KR (occurrence: KR)
  Receive Date: 20161010
  Receipt Date: 20161010
  Transmission Date: 20170207
  Serious: Yes (Hospitalization, Other)
  Sender: FDA-Public Use
  Company Number: KR-SYNTHON BV-NL01PV16_42018

PATIENT
  Age: 71 Year
  Sex: Male

DRUGS (3)
  1. PRAMIPEXOLE. [Concomitant]
     Active Substance: PRAMIPEXOLE
     Dosage: 0.5 MG, BED TIME
  2. ATIVAN [Concomitant]
     Active Substance: LORAZEPAM
     Dosage: 0.5 MG, UNK
  3. ZOLPIDEM [Suspect]
     Active Substance: ZOLPIDEM\ZOLPIDEM TARTRATE
     Dosage: 12.5 MG, CONTROLLED RELEASE

REACTIONS (3)
  - Anterograde amnesia [Unknown]
  - Abnormal behaviour [Recovered/Resolved]
  - Sleep-related eating disorder [Recovered/Resolved]
